FAERS Safety Report 16778439 (Version 1)
Quarter: 2019Q3

REPORT INFORMATION
  Report Type: Spontaneous
  Country: DE (occurrence: DE)
  Receive Date: 20190906
  Receipt Date: 20190906
  Transmission Date: 20191005
  Serious: Yes (Hospitalization)
  Sender: FDA-Public Use
  Company Number: PHHY2019DE203260

PATIENT
  Sex: Female

DRUGS (1)
  1. ENTRESTO [Suspect]
     Active Substance: SACUBITRIL\VALSARTAN
     Indication: CARDIAC FAILURE CHRONIC
     Dosage: 100 (49/51 MG)
     Route: 065
     Dates: start: 201906

REACTIONS (4)
  - Feeling abnormal [Unknown]
  - Blood pressure decreased [Unknown]
  - Dyspnoea [Unknown]
  - N-terminal prohormone brain natriuretic peptide abnormal [Unknown]
